FAERS Safety Report 15159696 (Version 2)
Quarter: 2018Q3

REPORT INFORMATION
  Report Type: Spontaneous
  Country: BG (occurrence: BG)
  Receive Date: 20180718
  Receipt Date: 20180724
  Transmission Date: 20181010
  Serious: Yes (Hospitalization)
  Sender: FDA-Public Use
  Company Number: BG-PFIZER INC-2018285204

PATIENT
  Age: 45 Year
  Sex: Male

DRUGS (2)
  1. BENAZEPRIL AND HYDROCHLOROTHIAZIDE [Suspect]
     Active Substance: BENAZEPRIL HYDROCHLORIDE\HYDROCHLOROTHIAZIDE
     Dosage: 1 DF, 1X/DAY, (1 DF (20/12.5 MG), QD (IN THE MORNING))
     Route: 048
  2. AMLODIPINE BESILATE [Suspect]
     Active Substance: AMLODIPINE BESYLATE
     Dosage: 5 MG, 1X/DAY, (5 MG (HALF UP TO 1 TABLET), QD (IN THE EVENING))
     Route: 048

REACTIONS (2)
  - Pulmonary embolism [Recovered/Resolved]
  - Deep vein thrombosis [Recovered/Resolved]
